FAERS Safety Report 8497884 (Version 5)
Quarter: 2013Q3

REPORT INFORMATION
  Report Type: Spontaneous
  Country: US (occurrence: US)
  Receive Date: 20120406
  Receipt Date: 20130702
  Transmission Date: 20140515
  Serious: Yes (Other)
  Sender: FDA-Public Use
  Company Number: US-PFIZER INC-2012084248

PATIENT
  Age: 66 Year
  Sex: Female
  Weight: 65.76 kg

DRUGS (7)
  1. LYRICA [Suspect]
     Indication: FIBROMYALGIA
     Dosage: 50 MG, AT BEDTIME
  2. LYRICA [Suspect]
     Dosage: ONE 50MG CAPSULE IN MORNING AND TWO 50MG CAPSULE AT NIGHT
     Route: 048
     Dates: start: 2008
  3. LYRICA [Suspect]
     Dosage: 50 MG, 3X/DAY
     Route: 048
  4. CHANTIX [Suspect]
     Dosage: UNK
  5. CYMBALTA [Concomitant]
     Dosage: 30 MG, UNK
  6. VESICARE [Concomitant]
     Dosage: 10 MG, UNK
  7. CLONAZEPAM [Concomitant]
     Dosage: 0.5 MG, UNK

REACTIONS (5)
  - Breast cancer [Unknown]
  - Axillary mass [Unknown]
  - Hypokinesia [Recovered/Resolved]
  - Pain [Not Recovered/Not Resolved]
  - Bedridden [Recovered/Resolved]
